FAERS Safety Report 6957391-7 (Version None)
Quarter: 2010Q3

REPORT INFORMATION
  Report Type: 
  Country: None (occurrence: None)
  Receive Date: 20100831
  Receipt Date: 20100818
  Transmission Date: 20110219
  Serious: Yes (Other)
  Sender: FDA-Public Use
  Company Number: PHFR2010GB02548

PATIENT

DRUGS (1)
  1. TEGRETOL [Suspect]
     Indication: DEPRESSION
     Route: 065

REACTIONS (1)
  - OBESITY [None]
